FAERS Safety Report 9467079 (Version 1)
Quarter: 2013Q3

REPORT INFORMATION
  Report Type: Spontaneous
  Country: US (occurrence: US)
  Receive Date: 20130820
  Receipt Date: 20130820
  Transmission Date: 20140515
  Serious: No
  Sender: FDA-Public Use
  Company Number: US-PFIZER INC-2013237275

PATIENT
  Age: 63 Year
  Sex: Male

DRUGS (1)
  1. XELJANZ [Suspect]
     Dosage: 5 MG, UNK
     Route: 048

REACTIONS (4)
  - Initial insomnia [Unknown]
  - Miliaria [Unknown]
  - Skin ulcer [Unknown]
  - Pruritus [Unknown]
